FAERS Safety Report 7664356-9 (Version None)
Quarter: 2011Q3

REPORT INFORMATION
  Report Type: 
  Country: None (occurrence: None)
  Receive Date: 20110806
  Receipt Date: 20110125
  Transmission Date: 20111222
  Serious: No
  Sender: FDA-Public Use
  Company Number: US-ABBOTT-11P-163-0699719-00

PATIENT
  Sex: Female

DRUGS (2)
  1. NIASPAN [Suspect]
     Indication: BLOOD TRIGLYCERIDES INCREASED
     Dates: start: 20100701, end: 20100801
  2. HUMIRA [Concomitant]
     Indication: PSORIATIC ARTHROPATHY

REACTIONS (4)
  - PRURITUS [None]
  - RASH [None]
  - ERYTHEMA [None]
  - PYREXIA [None]
